FAERS Safety Report 4411219-8 (Version None)
Quarter: 2004Q3

REPORT INFORMATION
  Report Type: 
  Country: None (occurrence: None)
  Receive Date: 20040727
  Receipt Date: 20040713
  Transmission Date: 20050211
  Serious: Yes (Hospitalization)
  Sender: FDA-Public Use
  Company Number: PL-JNJFOC-20040703267

PATIENT
  Age: 22 Year
  Sex: Female

DRUGS (1)
  1. PARACETAMOL (PARACETAMOL) TABLETS [Suspect]
     Indication: TOOTHACHE
     Dosage: 50 G ORAL
     Route: 048

REACTIONS (18)
  - ABDOMINAL PAIN [None]
  - ABDOMINAL TENDERNESS [None]
  - BACK PAIN [None]
  - BLOOD POTASSIUM DECREASED [None]
  - BLOOD SODIUM DECREASED [None]
  - BODY TEMPERATURE INCREASED [None]
  - HEART RATE INCREASED [None]
  - HEPATOMEGALY [None]
  - OCULAR ICTERUS [None]
  - OVERDOSE [None]
  - POISONING [None]
  - RED BLOOD CELLS URINE POSITIVE [None]
  - RENAL CORTICAL NECROSIS [None]
  - RENAL DISORDER [None]
  - RESPIRATORY RATE INCREASED [None]
  - VOMITING [None]
  - WHITE BLOOD CELL COUNT INCREASED [None]
  - WHITE BLOOD CELLS URINE POSITIVE [None]
